FAERS Safety Report 17887489 (Version 1)
Quarter: 2020Q2

REPORT INFORMATION
  Report Type: Spontaneous
  Country: US (occurrence: US)
  Receive Date: 20200611
  Receipt Date: 20200611
  Transmission Date: 20200714
  Serious: Yes (Disabling, Other)
  Sender: FDA-Public Use
  Company Number: US-SA-2020SA149065

PATIENT

DRUGS (1)
  1. LANTUS SOLOSTAR [Suspect]
     Active Substance: INSULIN GLARGINE
     Indication: TYPE 2 DIABETES MELLITUS
     Dosage: 26 IU, QD (EVERY EVENING)
     Route: 065

REACTIONS (7)
  - Asthenia [Unknown]
  - Product use complaint [Unknown]
  - Cataract [Unknown]
  - Eye disorder [Unknown]
  - Humerus fracture [Unknown]
  - Oedema [Unknown]
  - Cardiac failure congestive [Unknown]
